FAERS Safety Report 7879334-4 (Version None)
Quarter: 2011Q4

REPORT INFORMATION
  Report Type: 
  Country: None (occurrence: None)
  Receive Date: 20111101
  Receipt Date: 20111020
  Transmission Date: 20120403
  Serious: Yes (Hospitalization)
  Sender: FDA-Public Use
  Company Number: CA-ELI_LILLY_AND_COMPANY-CA201110005784

PATIENT
  Age: 85 Year
  Sex: Female

DRUGS (18)
  1. ASPIRIN [Concomitant]
  2. METOPROLOL TARTRATE [Concomitant]
  3. CYCLOSPORINE [Concomitant]
  4. LANSOPRAZOLE [Concomitant]
  5. POTASSIUM CHLORIDE [Concomitant]
  6. GABAPENTIN [Concomitant]
  7. HYDROMORPHONE HCL [Concomitant]
  8. CALCIUM CARBONATE [Concomitant]
  9. DIGOXIN [Concomitant]
  10. LORAZEPAM [Concomitant]
  11. CLOTRIMAZOLE [Concomitant]
  12. PREDNISONE [Suspect]
  13. ZOLOFT [Concomitant]
  14. VITAMIN D [Concomitant]
  15. FORTEO [Suspect]
     Indication: OSTEOPOROSIS
     Dosage: 20 UG, QD
     Route: 058
     Dates: start: 20100514, end: 20110501
  16. LEVOTHYROXINE SODIUM [Concomitant]
  17. DOCUSATE SODIUM [Concomitant]
  18. FERROUS GLUCONATE [Concomitant]

REACTIONS (2)
  - MALAISE [None]
  - GASTROENTERITIS [None]
